FAERS Safety Report 7049311-4 (Version None)
Quarter: 2010Q4

REPORT INFORMATION
  Report Type: 
  Country: None (occurrence: None)
  Receive Date: 20101018
  Receipt Date: 20100420
  Transmission Date: 20110411
  Serious: No
  Sender: FDA-Public Use
  Company Number: A0769315A

PATIENT
  Age: 64 Year
  Sex: Male

DRUGS (4)
  1. CEFTIN [Suspect]
     Dosage: 250MG TWICE PER DAY
     Route: 048
     Dates: start: 20090210
  2. AUGMENTIN '125' [Suspect]
     Indication: SINUSITIS
     Dosage: 1750MG TWICE PER DAY
     Route: 048
  3. FLOVENT [Concomitant]
  4. NASONEX [Concomitant]

REACTIONS (4)
  - ABDOMINAL DISCOMFORT [None]
  - DISORIENTATION [None]
  - SOMNOLENCE [None]
  - VISION BLURRED [None]
